FAERS Safety Report 17469979 (Version 2)
Quarter: 2020Q1

REPORT INFORMATION
  Report Type: Report from Study
  Country: US (occurrence: US)
  Receive Date: 20200227
  Receipt Date: 20200302
  Transmission Date: 20200409
  Serious: Yes (Death, Hospitalization)
  Sender: FDA-Public Use
  Company Number: US-ACTELION-A-NJ2016-147120

PATIENT
  Age: 77 Year
  Sex: Male

DRUGS (10)
  1. OPSUMIT [Suspect]
     Active Substance: MACITENTAN
     Indication: PULMONARY ARTERIAL HYPERTENSION
     Dosage: 10 MG, QD
     Route: 048
     Dates: start: 20161031
  2. XARELTO [Concomitant]
     Active Substance: RIVAROXABAN
  3. INSPRA [Concomitant]
     Active Substance: EPLERENONE
     Indication: PULMONARY HYPERTENSION
     Dosage: 50 MG, BID
  4. TYVASO [Concomitant]
     Active Substance: TREPROSTINIL
     Indication: PULMONARY HYPERTENSION
     Dosage: 12 PUFF 4X DAILY
  5. SILDENAFIL. [Concomitant]
     Active Substance: SILDENAFIL
     Indication: PULMONARY HYPERTENSION
     Dosage: 20 MG, TID
  6. TORSEMIDE. [Concomitant]
     Active Substance: TORSEMIDE
     Indication: PULMONARY HYPERTENSION
     Dosage: 100 MG, BID
  7. OXYGEN. [Concomitant]
     Active Substance: OXYGEN
  8. INSULIN [Concomitant]
     Active Substance: INSULIN NOS
  9. HUMULIN NOS [Concomitant]
     Active Substance: INSULIN HUMAN
  10. ELIQUIS [Concomitant]
     Active Substance: APIXABAN

REACTIONS (13)
  - Atrial fibrillation [Unknown]
  - Diabetes mellitus [Unknown]
  - Insomnia [Not Recovered/Not Resolved]
  - Nasal congestion [Not Recovered/Not Resolved]
  - Acute kidney injury [Unknown]
  - Bronchitis [Recovered/Resolved]
  - Product dose omission [Unknown]
  - Fluid overload [Unknown]
  - Malaise [Unknown]
  - Fluid retention [Recovering/Resolving]
  - Death [Fatal]
  - Contusion [Recovered/Resolved]
  - Blood glucose increased [Unknown]

NARRATIVE: CASE EVENT DATE: 201612
